FAERS Safety Report 4874517-X (Version None)
Quarter: 2006Q1

REPORT INFORMATION
  Report Type: 
  Country: None (occurrence: None)
  Receive Date: 20060106
  Receipt Date: 20051228
  Transmission Date: 20060701
  Serious: Yes (Life-Threatening)
  Sender: FDA-Public Use
  Company Number: DE-BOEHRINGER INGELHEIM PHARMACEUTICALS, INC.-2005-DE-05670DE

PATIENT
  Sex: Male
  Weight: 80 kg

DRUGS (4)
  1. SIFROL 0,18 MG [Suspect]
     Indication: PARKINSON'S DISEASE
     Route: 048
     Dates: start: 20050308, end: 20050927
  2. SIFROL 0,18 MG [Suspect]
     Route: 048
     Dates: start: 20030827, end: 20040829
  3. AMANTA 100 [Concomitant]
     Indication: PARKINSON'S DISEASE
     Route: 048
     Dates: start: 20040201
  4. ISICOM [Concomitant]
     Indication: PARKINSON'S DISEASE
     Route: 048
     Dates: start: 20030801

REACTIONS (1)
  - AORTIC VALVE SCLEROSIS [None]
